FAERS Safety Report 8620888-8 (Version None)
Quarter: 2012Q3

REPORT INFORMATION
  Report Type: 
  Country: None (occurrence: None)
  Receive Date: 20120824
  Receipt Date: 20120814
  Transmission Date: 20120928
  Serious: Yes (Hospitalization, Other)
  Sender: FDA-Public Use
  Company Number: US-GENZYME-CLOF-1002266

PATIENT
  Sex: Male
  Weight: 121.9 kg

DRUGS (15)
  1. EPINEPHRINE [Suspect]
     Indication: CARDIAC ARREST
     Dosage: 4 DF, UNK
     Route: 065
     Dates: start: 20120714, end: 20120714
  2. COLACE [Concomitant]
     Indication: PRODUCT USED FOR UNKNOWN INDICATION
     Dosage: UNK
     Route: 065
  3. BACTRIM [Concomitant]
     Indication: PRODUCT USED FOR UNKNOWN INDICATION
     Dosage: UNK
     Route: 065
  4. CYCLOPHOSPHAMIDE [Suspect]
     Indication: ACUTE LYMPHOCYTIC LEUKAEMIA
     Dosage: DAILY FOR 5 DAYS
     Route: 065
     Dates: start: 20120619, end: 20120623
  5. ONCASPAR [Suspect]
     Indication: ACUTE LYMPHOCYTIC LEUKAEMIA
     Dosage: UNK
     Route: 042
     Dates: start: 20120702, end: 20120702
  6. EPINEPHRINE [Suspect]
     Dosage: UNK
     Route: 065
     Dates: start: 20120714, end: 20120714
  7. STOMATITIS MOUTHWASH [Concomitant]
     Indication: STOMATITIS
     Dosage: UNK
     Route: 065
  8. PRILOSEC [Concomitant]
     Indication: PRODUCT USED FOR UNKNOWN INDICATION
     Dosage: UNK
     Route: 065
  9. LORTAB [Concomitant]
     Indication: PRODUCT USED FOR UNKNOWN INDICATION
     Dosage: UNK
     Route: 065
  10. CLOLAR [Suspect]
     Indication: ACUTE LYMPHOCYTIC LEUKAEMIA
     Dosage: 74.4 MG, QD
     Route: 042
     Dates: start: 20120619, end: 20120623
  11. ETOPOSIDE [Suspect]
     Indication: ACUTE LYMPHOCYTIC LEUKAEMIA
     Dosage: UNK
     Route: 065
     Dates: start: 20120619, end: 20120623
  12. CYMBALTA [Concomitant]
     Indication: PRODUCT USED FOR UNKNOWN INDICATION
     Dosage: UNK
     Route: 065
  13. VINCRISTINE SULFATE [Suspect]
     Indication: ACUTE LYMPHOCYTIC LEUKAEMIA
     Dosage: UNK
     Route: 065
     Dates: start: 20120702, end: 20120702
  14. ONDANSETRON [Concomitant]
     Indication: PRODUCT USED FOR UNKNOWN INDICATION
     Dosage: UNK
     Route: 065
  15. AMBIEN [Concomitant]
     Indication: PRODUCT USED FOR UNKNOWN INDICATION
     Dosage: UNK
     Route: 065

REACTIONS (25)
  - VENTRICULAR EXTRASYSTOLES [None]
  - TREMOR [None]
  - PANCYTOPENIA [None]
  - FUNGAL INFECTION [None]
  - INFUSION RELATED REACTION [None]
  - HYPOTENSION [None]
  - RESPIRATORY ARREST [None]
  - SINUS TACHYCARDIA [None]
  - ABSCESS LIMB [None]
  - CONVULSION [None]
  - FEELING ABNORMAL [None]
  - HYPERTENSION [None]
  - DYSPNOEA [None]
  - PRURITUS [None]
  - PULSE ABSENT [None]
  - UNRESPONSIVE TO STIMULI [None]
  - RESPIRATORY FAILURE [None]
  - CANDIDIASIS [None]
  - SEPSIS [None]
  - CARDIAC ARREST [None]
  - METABOLIC ACIDOSIS [None]
  - ESCHERICHIA INFECTION [None]
  - PYREXIA [None]
  - VENTRICULAR TACHYCARDIA [None]
  - DEVICE RELATED INFECTION [None]
